FAERS Safety Report 14471701 (Version 2)
Quarter: 2018Q1

REPORT INFORMATION
  Report Type: Report from Study
  Country: US (occurrence: US)
  Receive Date: 20180131
  Receipt Date: 20180312
  Transmission Date: 20180509
  Serious: Yes (Death, Other)
  Sender: FDA-Public Use
  Company Number: US-GILEAD-2018-0318661

PATIENT
  Age: 78 Year
  Sex: Female
  Weight: 47.76 kg

DRUGS (7)
  1. AMBRISENTAN [Suspect]
     Active Substance: AMBRISENTAN
     Indication: PULMONARY HYPERTENSION
     Dosage: 5 MG, QD
     Route: 065
     Dates: start: 20120717, end: 20180115
  2. AZATHIOPRINE. [Concomitant]
     Active Substance: AZATHIOPRINE
  3. SILDENAFIL. [Concomitant]
     Active Substance: SILDENAFIL
  4. AMBRISENTAN [Suspect]
     Active Substance: AMBRISENTAN
     Indication: CONNECTIVE TISSUE DISORDER
  5. ADCIRCA [Concomitant]
     Active Substance: TADALAFIL
  6. BOSENTAN. [Concomitant]
     Active Substance: BOSENTAN
  7. FAMOTIDINE. [Concomitant]
     Active Substance: FAMOTIDINE

REACTIONS (6)
  - Interstitial lung disease [Fatal]
  - Cardio-respiratory arrest [Fatal]
  - Sepsis [Fatal]
  - Acute respiratory failure [Fatal]
  - Pulmonary hypertension [Fatal]
  - Pulseless electrical activity [Unknown]
